FAERS Safety Report 7287547-8 (Version None)
Quarter: 2011Q1

REPORT INFORMATION
  Report Type: 
  Country: None (occurrence: None)
  Receive Date: 20110211
  Receipt Date: 20110201
  Transmission Date: 20110831
  Serious: Yes (Other)
  Sender: FDA-Public Use
  Company Number: CA-JNJFOC-20110201152

PATIENT
  Sex: Male
  Weight: 88.1 kg

DRUGS (3)
  1. REMICADE [Suspect]
     Indication: CROHN'S DISEASE
     Route: 042
  2. IMURAN [Concomitant]
  3. REMICADE [Suspect]
     Route: 042

REACTIONS (2)
  - UPPER LIMB FRACTURE [None]
  - HUMERUS FRACTURE [None]
